FAERS Safety Report 8362538-4 (Version None)
Quarter: 2012Q2

REPORT INFORMATION
  Report Type: 
  Country: None (occurrence: None)
  Receive Date: 20120516
  Receipt Date: 20120504
  Transmission Date: 20120825
  Serious: Yes (Hospitalization)
  Sender: FDA-Public Use
  Company Number: US-BRISTOL-MYERS SQUIBB COMPANY-16586794

PATIENT
  Age: 72 Year
  Sex: Female
  Weight: 59 kg

DRUGS (4)
  1. CETUXIMAB [Suspect]
     Indication: HEAD AND NECK CANCER METASTATIC
     Dates: start: 20120417
  2. DOCETAXEL [Suspect]
     Indication: HEAD AND NECK CANCER METASTATIC
     Dates: start: 20120417
  3. CISPLATIN [Suspect]
     Indication: HEAD AND NECK CANCER METASTATIC
     Dates: start: 20120417
  4. FLUOROURACIL [Suspect]
     Indication: HEAD AND NECK CANCER METASTATIC
     Dosage: 1 DF = 1581 UNITS NOS
     Dates: start: 20120417

REACTIONS (1)
  - ANAEMIA [None]
